FAERS Safety Report 4380582-9 (Version None)
Quarter: 2004Q2

REPORT INFORMATION
  Report Type: 
  Country: None (occurrence: None)
  Receive Date: 20040610
  Receipt Date: 20040211
  Transmission Date: 20050107
  Serious: Yes (Other)
  Sender: FDA-Public Use
  Company Number: A03200400430

PATIENT
  Age: 46 Year
  Sex: Female
  Weight: 66.6788 kg

DRUGS (6)
  1. ELOXATIN [Suspect]
     Indication: COLORECTAL CANCER
     Dosage: 150  MG Q2W - INTRAVENOUS NOS
     Route: 042
     Dates: start: 20031229, end: 20031229
  2. ELOXATIN [Suspect]
     Indication: METASTASES TO LIVER
     Dosage: 150  MG Q2W - INTRAVENOUS NOS
     Route: 042
     Dates: start: 20031229, end: 20031229
  3. FLUOROURACIL [Concomitant]
  4. LEUCOVORIN [Concomitant]
  5. DEXAMETHASONE [Concomitant]
  6. GRANISETRON [Concomitant]

REACTIONS (4)
  - ABDOMINAL PAIN [None]
  - BURNING SENSATION [None]
  - DYSPNOEA [None]
  - RASH [None]
